FAERS Safety Report 4471849-4 (Version None)
Quarter: 2004Q4

REPORT INFORMATION
  Report Type: 
  Country: None (occurrence: None)
  Receive Date: 20041012
  Receipt Date: 20041006
  Transmission Date: 20050328
  Serious: Yes (Death)
  Sender: FDA-Public Use
  Company Number: PHBS2004JP13369

PATIENT
  Age: 6 Year
  Sex: Male

DRUGS (2)
  1. CYCLOSPORINE [Suspect]
     Indication: CONGENITAL APLASTIC ANAEMIA
     Route: 065
  2. PREDNISOLONE [Concomitant]
     Indication: CONGENITAL APLASTIC ANAEMIA
     Route: 065

REACTIONS (1)
  - INFECTION [None]
